FAERS Safety Report 13573331 (Version 1)
Quarter: 2017Q2

REPORT INFORMATION
  Report Type: Spontaneous
  Country: US (occurrence: US)
  Receive Date: 20170523
  Receipt Date: 20170523
  Transmission Date: 20170830
  Serious: Yes (Other)
  Sender: FDA-Public Use
  Company Number: GXBR2017US001675

PATIENT
  Sex: Female
  Weight: 55.33 kg

DRUGS (2)
  1. INSULIN LIKE GROWTH FACTOR I (HUMAN) [Concomitant]
     Indication: GROWTH HORMONE DEFICIENCY
     Dosage: 1 DF, QHS
     Dates: start: 20170324
  2. OMNITROPE [Suspect]
     Active Substance: SOMATROPIN
     Indication: GROWTH HORMONE DEFICIENCY
     Dosage: 5 MG, QHS
     Route: 065
     Dates: start: 20170324, end: 20170509

REACTIONS (4)
  - Incorrect dose administered [Recovered/Resolved]
  - Off label use [Recovered/Resolved]
  - Cheilitis [Recovered/Resolved]
  - Skin cancer [Not Recovered/Not Resolved]
